FAERS Safety Report 4757777-5 (Version None)
Quarter: 2005Q3

REPORT INFORMATION
  Report Type: 
  Country: None (occurrence: None)
  Receive Date: 20050826
  Receipt Date: 20050721
  Transmission Date: 20060218
  Serious: No
  Sender: FDA-Public Use
  Company Number: WAES 0507USA03279

PATIENT
  Age: 77 Year
  Sex: Female

DRUGS (4)
  1. ZETIA [Suspect]
     Indication: BLOOD CHOLESTEROL INCREASED
     Dosage: 10 MG/DAILY/PO
     Route: 048
     Dates: start: 20050708
  2. SYNTHROID [Concomitant]
  3. ZIAC [Concomitant]
  4. ZOLOFT [Concomitant]

REACTIONS (1)
  - BACK PAIN [None]
